FAERS Safety Report 5384712-1 (Version None)
Quarter: 2007Q3

REPORT INFORMATION
  Report Type: 
  Country: None (occurrence: None)
  Receive Date: 20070711
  Receipt Date: 20070615
  Transmission Date: 20080115
  Serious: Yes (Other)
  Sender: FDA-Public Use
  Company Number: JP-PFIZER INC-2007053612

PATIENT
  Sex: Male

DRUGS (2)
  1. XALATAN [Suspect]
     Route: 047
  2. ALL OTHER THERAPEUTIC PRODUCTS [Concomitant]
     Route: 047

REACTIONS (4)
  - BLINDNESS UNILATERAL [None]
  - INTRAOCULAR PRESSURE INCREASED [None]
  - OVERDOSE [None]
  - VISUAL ACUITY REDUCED [None]
